FAERS Safety Report 11329665 (Version 1)
Quarter: 2015Q3

REPORT INFORMATION
  Report Type: Spontaneous
  Country: US (occurrence: None)
  Receive Date: 20150730
  Receipt Date: 20150730
  Transmission Date: 20151125
  Serious: No
  Sender: FDA-Public Use
  Company Number: None

PATIENT
  Age: 69 Year
  Sex: Male

DRUGS (13)
  1. ATORVASTATIN [Concomitant]
     Active Substance: ATORVASTATIN
  2. MULTIVITAMIN [Concomitant]
     Active Substance: VITAMINS
  3. CLOPIDOGREL [Concomitant]
     Active Substance: CLOPIDOGREL BISULFATE
  4. INSULIN LISPRO [Concomitant]
     Active Substance: INSULIN LISPRO
  5. METOPROLOL [Concomitant]
     Active Substance: METOPROLOL
  6. VITAMIN C [Suspect]
     Active Substance: ASCORBIC ACID
  7. GABAPENTIN. [Concomitant]
     Active Substance: GABAPENTIN
  8. INSULIN DETEMIR [Concomitant]
     Active Substance: INSULIN DETEMIR
  9. PAROXETINE [Concomitant]
     Active Substance: PAROXETINE\PAROXETINE HYDROCHLORIDE
  10. LISINOPRIL. [Suspect]
     Active Substance: LISINOPRIL
     Indication: HYPERTENSION
     Route: 048
     Dates: end: 20150202
  11. HYDROMORPHONE [Concomitant]
     Active Substance: HYDROMORPHONE
  12. ASA [Concomitant]
     Active Substance: ASPIRIN
  13. CODEINE [Concomitant]
     Active Substance: CODEINE

REACTIONS (2)
  - Blood potassium increased [None]
  - Impaired healing [None]

NARRATIVE: CASE EVENT DATE: 20150203
